FAERS Safety Report 5210230-7 (Version None)
Quarter: 2006Q4

REPORT INFORMATION
  Report Type: 
  Country: None (occurrence: None)
  Receive Date: 20061130
  Receipt Date: 20060919
  Transmission Date: 20070319
  Serious: No
  Sender: FDA-Public Use
  Company Number: 06H-163-0310343-00

PATIENT
  Age: 33 Year
  Sex: Female
  Weight: 83.9154 kg

DRUGS (6)
  1. PROPOFOL [Suspect]
     Indication: GENERAL ANAESTHESIA
     Dates: start: 20060919, end: 20060919
  2. VERSED [Concomitant]
  3. FENTANYL [Concomitant]
  4. LIDOCAINE [Concomitant]
  5. CLEOCIN (CLINDAMYCIN HYDROCHLORIDE) [Concomitant]
  6. ATRACURIUM BESYLATE [Concomitant]

REACTIONS (1)
  - BRONCHOSPASM [None]
